FAERS Safety Report 14860143 (Version 2)
Quarter: 2018Q2

REPORT INFORMATION
  Report Type: Spontaneous
  Country: US (occurrence: US)
  Receive Date: 20180508
  Receipt Date: 20180530
  Transmission Date: 20180711
  Serious: No
  Sender: FDA-Public Use
  Company Number: US-ALEXION PHARMACEUTICALS INC.-A201805090

PATIENT
  Age: 10 Year
  Sex: Female
  Weight: 60.2 kg

DRUGS (3)
  1. STRENSIQ [Suspect]
     Active Substance: ASFOTASE ALFA
     Indication: HYPOPHOSPHATASIA
     Dosage: 2MG/KG, TIW
     Route: 058
     Dates: start: 201712
  2. EMLA [Concomitant]
     Active Substance: LIDOCAINE\PRILOCAINE
     Indication: INJECTION SITE REACTION
     Dosage: UNK
     Route: 061
  3. BENADRYL [Concomitant]
     Active Substance: DIPHENHYDRAMINE HYDROCHLORIDE
     Indication: INJECTION SITE REACTION
     Dosage: 5 ML, UNK
     Route: 048

REACTIONS (10)
  - Injection site erythema [Recovered/Resolved]
  - Injection site reaction [Recovering/Resolving]
  - Injection site pain [Not Recovered/Not Resolved]
  - Injection site vesicles [Not Recovered/Not Resolved]
  - Blood creatinine decreased [Unknown]
  - Protein total increased [Unknown]
  - Anion gap increased [Unknown]
  - Injection site warmth [Recovering/Resolving]
  - Weight increased [Unknown]
  - Blood alkaline phosphatase increased [Unknown]

NARRATIVE: CASE EVENT DATE: 201712
